FAERS Safety Report 4969146-3 (Version None)
Quarter: 2006Q2

REPORT INFORMATION
  Report Type: 
  Country: None (occurrence: None)
  Receive Date: 20060411
  Receipt Date: 20050705
  Transmission Date: 20061013
  Serious: No
  Sender: FDA-Public Use
  Company Number: US-BRISTOL-MYERS SQUIBB COMPANY-13025309

PATIENT
  Sex: Female
  Weight: 86 kg

DRUGS (5)
  1. PARAPLATIN [Suspect]
     Indication: OVARIAN CANCER
     Route: 042
     Dates: start: 20050104
  2. DECADRON [Concomitant]
     Indication: PREMEDICATION
  3. BENADRYL [Concomitant]
     Indication: PREMEDICATION
  4. KYTRIL [Concomitant]
     Indication: PREMEDICATION
  5. ZANTAC [Concomitant]
     Indication: PREMEDICATION

REACTIONS (1)
  - MUSCLE SPASMS [None]
